FAERS Safety Report 23423929 (Version 1)
Quarter: 2024Q1

REPORT INFORMATION
  Report Type: Report from Study
  Country: US (occurrence: US)
  Receive Date: 20240119
  Receipt Date: 20240119
  Transmission Date: 20240409
  Serious: Yes (Hospitalization, Other)
  Sender: FDA-Public Use
  Company Number: US-ABBVIE-5596771

PATIENT
  Age: 91 Year
  Sex: Male

DRUGS (1)
  1. LUPRON [Suspect]
     Active Substance: LEUPROLIDE ACETATE
     Indication: Product used for unknown indication
     Route: 065

REACTIONS (4)
  - Peripheral artery occlusion [Unknown]
  - Condition aggravated [Unknown]
  - Poor peripheral circulation [Unknown]
  - Localised infection [Unknown]

NARRATIVE: CASE EVENT DATE: 20240115
